FAERS Safety Report 5258864-8 (Version None)
Quarter: 2007Q1

REPORT INFORMATION
  Report Type: 
  Country: None (occurrence: None)
  Receive Date: 20070308
  Receipt Date: 20070228
  Transmission Date: 20070707
  Serious: Yes (Other)
  Sender: FDA-Public Use
  Company Number: US-ROCHE-484670

PATIENT
  Sex: Female

DRUGS (2)
  1. PEGASYS [Suspect]
     Indication: DRUG USE FOR UNKNOWN INDICATION
     Dosage: PATIENT WAS ON PEGINTERFERON FOR 4 MONTHS IN 2004.
     Route: 065
     Dates: start: 20040615, end: 20041015
  2. UNSPECIFIED MEDICATION [Concomitant]
     Dosage: PATIENT TOOK AN UNSPECIFIED MEDICATION.

REACTIONS (9)
  - ANAEMIA [None]
  - DEPRESSION [None]
  - DRUG INEFFECTIVE [None]
  - HEPATIC CIRRHOSIS [None]
  - HYPERTENSION [None]
  - INSOMNIA [None]
  - PERSONALITY CHANGE [None]
  - PROCEDURAL PAIN [None]
  - THINKING ABNORMAL [None]
